FAERS Safety Report 11130386 (Version 7)
Quarter: 2018Q2

REPORT INFORMATION
  Report Type: Report from Study
  Country: DE (occurrence: DE)
  Receive Date: 20150522
  Receipt Date: 20180406
  Transmission Date: 20180711
  Serious: Yes (Life-Threatening, Hospitalization)
  Sender: FDA-Public Use
  Company Number: PHHO2015DE008982

PATIENT
  Age: 76 Year
  Sex: Female
  Weight: 120 kg

DRUGS (10)
  1. AIN457 [Suspect]
     Active Substance: SECUKINUMAB
     Indication: PSORIASIS
     Dosage: UNK
     Route: 058
     Dates: start: 20140617, end: 20150324
  2. CANDECOR [Concomitant]
     Active Substance: CANDESARTAN CILEXETIL
     Indication: HYPERTENSION
     Dosage: UNK
     Route: 048
     Dates: start: 20140910
  3. CONCOR [Concomitant]
     Active Substance: BISOPROLOL FUMARATE
     Indication: HYPERTENSION
     Dosage: 10 MG, UNK
     Route: 048
     Dates: start: 19900101, end: 20140909
  4. CANDESARTAN. [Concomitant]
     Active Substance: CANDESARTAN
     Indication: HYPERTENSION
     Dosage: 16 MG, QD
     Route: 048
     Dates: start: 20140912
  5. EUTHYROX [Concomitant]
     Active Substance: LEVOTHYROXINE SODIUM
     Indication: THYROIDECTOMY
     Dosage: 100 UG, QD
     Route: 048
     Dates: start: 19950101, end: 20140222
  6. EUTHYROX [Concomitant]
     Active Substance: LEVOTHYROXINE SODIUM
     Dosage: 100 UG, QD
     Route: 048
     Dates: start: 20150225
  7. EUTHYROX [Concomitant]
     Active Substance: LEVOTHYROXINE SODIUM
     Dosage: 125 UG, QD
     Route: 048
     Dates: start: 20140912, end: 20150222
  8. CALCIUM SANDOZ + D [Concomitant]
     Indication: PARATHYROIDECTOMY
     Dosage: 500 MG, QID
     Route: 048
     Dates: start: 20150225
  9. BAYOTENSIN [Concomitant]
     Active Substance: NITRENDIPINE
     Indication: HYPERTENSION
     Dosage: 5 MG, QD
     Dates: start: 20140909, end: 20140909
  10. CALCIUM SANDOZ + D [Concomitant]
     Indication: HYPOCALCAEMIA
     Dosage: 2500 MG, QD
     Route: 048
     Dates: start: 20150222, end: 20150224

REACTIONS (3)
  - Systemic inflammatory response syndrome [Recovered/Resolved]
  - Segmented hyalinising vasculitis [Recovering/Resolving]
  - Atrial fibrillation [Recovering/Resolving]

NARRATIVE: CASE EVENT DATE: 20150514
